FAERS Safety Report 16274388 (Version 1)
Quarter: 2019Q2

REPORT INFORMATION
  Report Type: Spontaneous
  Country: US (occurrence: US)
  Receive Date: 20190503
  Receipt Date: 20190503
  Transmission Date: 20190711
  Serious: Yes (Other)
  Sender: FDA-Public Use
  Company Number: None

PATIENT
  Age: 32 Year
  Sex: Female
  Weight: 115.2 kg

DRUGS (2)
  1. BUPRENORPHINE AND NALOXONE SUBLINGUAL FILM [Suspect]
     Active Substance: BUPRENORPHINE HYDROCHLORIDE\NALOXONE HYDROCHLORIDE
     Indication: PAIN
     Dosage: ?          QUANTITY:1 SUBLINGUAL FILM;?
     Route: 060
     Dates: start: 20190311, end: 20190410
  2. BUPRENORPHINE AND NALOXONE SUBLINGUAL FILM [Suspect]
     Active Substance: BUPRENORPHINE HYDROCHLORIDE\NALOXONE HYDROCHLORIDE
     Indication: DRUG DEPENDENCE
     Dosage: ?          QUANTITY:1 SUBLINGUAL FILM;?
     Route: 060
     Dates: start: 20190311, end: 20190410

REACTIONS (8)
  - Therapeutic product effect incomplete [None]
  - Product substitution issue [None]
  - Rash [None]
  - Pruritus [None]
  - Nausea [None]
  - Skin burning sensation [None]
  - Dysphonia [None]
  - Feeling jittery [None]

NARRATIVE: CASE EVENT DATE: 20190311
